FAERS Safety Report 17882118 (Version 2)
Quarter: 2022Q2

REPORT INFORMATION
  Report Type: Spontaneous
  Country: DE (occurrence: DE)
  Receive Date: 20200610
  Receipt Date: 20220505
  Transmission Date: 20220721
  Serious: Yes (Other)
  Sender: FDA-Public Use
  Company Number: DE-NOVARTISPH-NVSC2020DE160907

PATIENT
  Sex: Female
  Weight: 60 kg

DRUGS (11)
  1. DEXAMETHASONE [Suspect]
     Active Substance: DEXAMETHASONE
     Indication: Diffuse large B-cell lymphoma
     Dosage: UNK (2ND LINE THERAPY, ACCORDING TO DHOX-RITUXIMAB REGIMEN, 2 CYCLES)
     Route: 065
     Dates: start: 201904, end: 201905
  2. OXALIPLATIN [Suspect]
     Active Substance: OXALIPLATIN
     Indication: Diffuse large B-cell lymphoma
     Dosage: UNK (2ND LINE THERAPY, ACCORDING TO DHOX-RITUXIMAB REGIMEN, 2 CYCLES)
     Route: 065
     Dates: start: 201904, end: 201905
  3. CYCLOPHOSPHAMIDE [Suspect]
     Active Substance: CYCLOPHOSPHAMIDE
     Indication: Diffuse large B-cell lymphoma
     Dosage: UNK (2ND LINE THERAPY, ACCORDING TO DHOX-RITUXIMAB REGIMEN, 2 CYCLES)
     Route: 065
     Dates: start: 201910, end: 201910
  4. DOXORUBICIN HYDROCHLORIDE [Suspect]
     Active Substance: DOXORUBICIN HYDROCHLORIDE
     Indication: Diffuse large B-cell lymphoma
     Dosage: UNK (5TH LINE THERAPY, ACCORDING TO R-CHOP REGIMEN)
     Route: 065
     Dates: start: 201910, end: 201910
  5. PREDNISONE [Suspect]
     Active Substance: PREDNISONE
     Indication: Diffuse large B-cell lymphoma
     Dosage: UNK
     Route: 065
     Dates: start: 201910, end: 201910
  6. VINCRISTINE [Suspect]
     Active Substance: VINCRISTINE
     Indication: Diffuse large B-cell lymphoma
     Dosage: UNK (5TH  LINE THERAPY, ACCORDING TO R-CHOP REGIME)
     Route: 065
     Dates: start: 201910, end: 201910
  7. CYTARABINE [Suspect]
     Active Substance: CYTARABINE
     Indication: Diffuse large B-cell lymphoma
     Dosage: UNK (2ND LINE THERAPY, ACCORDING TO DHOX-RITUXIMAB REGIMEN, 2 CYCLES)
     Route: 065
     Dates: start: 201904, end: 201905
  8. MABTHERA [Suspect]
     Active Substance: RITUXIMAB
     Indication: Diffuse large B-cell lymphoma
     Dosage: UNK (1ST LINE THERAPY, ACCORDING TO GM-ALL REGIMEN, 6 CYCLES + RITUXIMAB, 2 CYCLES)
     Route: 065
     Dates: start: 201805, end: 201811
  9. MABTHERA [Suspect]
     Active Substance: RITUXIMAB
     Dosage: UNK (2ND LINE THERAPY, ACCORDING TO DHOX-RITUXIMAB REGIMEN, 2 CYCLES)
     Route: 065
     Dates: start: 201904, end: 201905
  10. MABTHERA [Suspect]
     Active Substance: RITUXIMAB
     Dosage: UNK (5TH  LINE THERAPY, ACCORDING TO R-CHOP REGIME)
     Route: 065
     Dates: start: 201910, end: 201910
  11. CYCLOPHOSPHAMIDE\DOXORUBICIN\PREDNISONE\VINCRISTINE [Suspect]
     Active Substance: CYCLOPHOSPHAMIDE\DOXORUBICIN\PREDNISONE\VINCRISTINE
     Indication: Diffuse large B-cell lymphoma
     Dosage: UNK (5TH LINE THERAPY, ACCORDING TO R-CHOP REGIME)
     Route: 065
     Dates: start: 201910, end: 201910

REACTIONS (1)
  - Pancytopenia [Unknown]
